FAERS Safety Report 24443944 (Version 2)
Quarter: 2024Q4

REPORT INFORMATION
  Report Type: Report from Study
  Country: US (occurrence: US)
  Receive Date: 20241016
  Receipt Date: 20241017
  Transmission Date: 20250114
  Serious: No
  Sender: ROCHE
  Company Number: US-ROCHE-2560232

PATIENT
  Age: 89 Year
  Sex: Female

DRUGS (6)
  1. RITUXAN [Suspect]
     Active Substance: RITUXIMAB
     Indication: Cryoglobulinaemia
     Dosage: DATE OF SERVICE: 29-DEC-2022, 03/JAN/2024
     Route: 042
  2. RITUXAN [Suspect]
     Active Substance: RITUXIMAB
     Indication: Hypersensitivity vasculitis
     Dosage: DATE OF SERVICE 03/MAY/2024
     Route: 042
     Dates: start: 20200420
  3. RITUXAN [Suspect]
     Active Substance: RITUXIMAB
     Indication: Cutaneous vasculitis
     Route: 042
     Dates: start: 20220425
  4. ELIQUIS [Concomitant]
     Active Substance: APIXABAN
  5. MEVACOR [Concomitant]
     Active Substance: LOVASTATIN
  6. SYNTHROID [Concomitant]
     Active Substance: LEVOTHYROXINE SODIUM

REACTIONS (2)
  - Off label use [Unknown]
  - No adverse event [Unknown]
